FAERS Safety Report 5006353-8 (Version None)
Quarter: 2006Q2

REPORT INFORMATION
  Report Type: 
  Country: None (occurrence: None)
  Receive Date: 20060519
  Receipt Date: 20060509
  Transmission Date: 20061013
  Serious: Yes (Hospitalization)
  Sender: FDA-Public Use
  Company Number: PHBS2006AT06954

PATIENT
  Age: 68 Year
  Sex: Female

DRUGS (1)
  1. AREDIA [Suspect]
     Dosage: UNK, UNK
     Route: 065

REACTIONS (4)
  - FAILURE OF IMPLANT [None]
  - GRANULOMA [None]
  - PLASTIC SURGERY TO THE FACE [None]
  - TOOTH EXTRACTION [None]
